FAERS Safety Report 8417576-X (Version None)
Quarter: 2012Q2

REPORT INFORMATION
  Report Type: 
  Country: None (occurrence: None)
  Receive Date: 20120606
  Receipt Date: 20120525
  Transmission Date: 20120825
  Serious: No
  Sender: FDA-Public Use
  Company Number: US-B.I. PHARMACEUTICALS,INC./RIDGEFIELD-2012-BP-12423BP

PATIENT
  Sex: Female

DRUGS (10)
  1. PROVENTIL [Concomitant]
  2. ZOCOR [Concomitant]
  3. PREMARIN [Concomitant]
  4. LIPITOR [Concomitant]
  5. HYDROCHLOROTHIAZIDE [Concomitant]
  6. PRILOSEC [Concomitant]
  7. REGLAN [Concomitant]
  8. SPIRIVA [Suspect]
     Dosage: 18 MCG
     Route: 055
  9. ADVAIR DISKUS 100/50 [Concomitant]
  10. ZANTAC [Concomitant]

REACTIONS (1)
  - LUNG DISORDER [None]
